FAERS Safety Report 15315318 (Version 1)
Quarter: 2018Q3

REPORT INFORMATION
  Report Type: Spontaneous
  Country: RO (occurrence: RO)
  Receive Date: 20180824
  Receipt Date: 20180824
  Transmission Date: 20181010
  Serious: Yes (Life-Threatening, Other)
  Sender: FDA-Public Use
  Company Number: RO-MYLANLABS-2018M1062794

PATIENT
  Age: 36 Year
  Sex: Female

DRUGS (2)
  1. RETINOIC ACID [Suspect]
     Active Substance: TRETINOIN
     Indication: ACUTE PROMYELOCYTIC LEUKAEMIA
     Route: 048
  2. IDARUBICIN [Suspect]
     Active Substance: IDARUBICIN
     Indication: ACUTE PROMYELOCYTIC LEUKAEMIA
     Route: 065

REACTIONS (7)
  - Disseminated intravascular coagulation [Unknown]
  - Disease recurrence [Unknown]
  - Toxicity to various agents [Unknown]
  - Bone marrow failure [Unknown]
  - Upper gastrointestinal haemorrhage [Unknown]
  - Gastrointestinal inflammation [Unknown]
  - Drug-disease interaction [Unknown]
